FAERS Safety Report 6161752-6 (Version None)
Quarter: 2009Q2

REPORT INFORMATION
  Report Type: 
  Country: None (occurrence: None)
  Receive Date: 20090421
  Receipt Date: 20090413
  Transmission Date: 20091009
  Serious: Yes (Hospitalization, Other)
  Sender: FDA-Public Use
  Company Number: US-ROCHE-627378

PATIENT
  Sex: Male
  Weight: 78.9 kg

DRUGS (5)
  1. CAPECITABINE [Suspect]
     Indication: COLORECTAL CANCER
     Dosage: DOSE: TWO TAB (1000 MG) IN AM AND THREE TAB (1500 MG) IN PM
     Route: 048
     Dates: start: 20090103, end: 20090304
  2. ACTOS [Concomitant]
  3. LYRICA [Concomitant]
  4. LIPITOR [Concomitant]
  5. TOPROL-XL [Concomitant]

REACTIONS (5)
  - BLOOD POTASSIUM DECREASED [None]
  - DIARRHOEA [None]
  - MALNUTRITION [None]
  - VENTRICULAR TACHYCARDIA [None]
  - WHITE BLOOD CELL COUNT DECREASED [None]
